FAERS Safety Report 18767828 (Version 1)
Quarter: 2021Q1

REPORT INFORMATION
  Report Type: Spontaneous
  Country: US (occurrence: US)
  Receive Date: 20210120
  Receipt Date: 20210120
  Transmission Date: 20210419
  Serious: Yes (Hospitalization)
  Sender: FDA-Public Use
  Company Number: None

PATIENT
  Age: 77 Year
  Sex: Male
  Weight: 101 kg

DRUGS (1)
  1. PHENAZOPYRIDINE (PHENAZOPYRIDINE HCL 200MG TAB) [Suspect]
     Active Substance: PHENAZOPYRIDINE HYDROCHLORIDE
     Indication: DYSURIA
     Route: 048
     Dates: start: 20200911, end: 20200923

REACTIONS (3)
  - Renal impairment [None]
  - Urinary tract infection [None]
  - Acute kidney injury [None]

NARRATIVE: CASE EVENT DATE: 20200915
